FAERS Safety Report 8828539 (Version 3)
Quarter: 2013Q1

REPORT INFORMATION
  Report Type: Spontaneous
  Country: FR (occurrence: FR)
  Receive Date: 20121005
  Receipt Date: 20130104
  Transmission Date: 20140127
  Serious: Yes (Other)
  Sender: FDA-Public Use
  Company Number: FR-TEVA-362422ISR

PATIENT
  Age: 61 Year
  Sex: Male

DRUGS (15)
  1. ETOPOSIDE [Suspect]
     Indication: ANGIOIMMUNOBLASTIC T-CELL LYMPHOMA
  2. METHOTREXATE [Suspect]
     Indication: ANGIOIMMUNOBLASTIC T-CELL LYMPHOMA
  3. VINCRISTINE [Suspect]
     Indication: ANGIOIMMUNOBLASTIC T-CELL LYMPHOMA
  4. DOXORUBICIN [Suspect]
     Indication: ANGIOIMMUNOBLASTIC T-CELL LYMPHOMA
  5. PREDNISOLONE [Suspect]
     Indication: ANGIOIMMUNOBLASTIC T-CELL LYMPHOMA
  6. CYTARABINE [Suspect]
     Indication: ANGIOIMMUNOBLASTIC T-CELL LYMPHOMA
  7. PURINETHOL [Suspect]
     Indication: ANGIOIMMUNOBLASTIC T-CELL LYMPHOMA
  8. PROCARBAZINE [Suspect]
     Indication: ANGIOIMMUNOBLASTIC T-CELL LYMPHOMA
  9. CYCLOPHOSPHAMID [Suspect]
     Indication: ANGIOIMMUNOBLASTIC T-CELL LYMPHOMA
  10. DEXAMETHASONE [Suspect]
     Indication: ANGIOIMMUNOBLASTIC T-CELL LYMPHOMA
  11. INTERFERON ALFA PEGYLATED [Suspect]
     Indication: ANGIOIMMUNOBLASTIC T-CELL LYMPHOMA
  12. PREDNISONE [Concomitant]
     Indication: HODGKIN^S DISEASE
  13. BLEOMYCIN [Concomitant]
     Indication: HODGKIN^S DISEASE
  14. VINBLASTINE [Concomitant]
     Indication: HODGKIN^S DISEASE
  15. DACARBAZINE [Concomitant]
     Indication: HODGKIN^S DISEASE

REACTIONS (1)
  - Hodgkin^s disease [Recovering/Resolving]
